FAERS Safety Report 23936772 (Version 1)
Quarter: 2024Q2

REPORT INFORMATION
  Report Type: Spontaneous
  Country: FR (occurrence: FR)
  Receive Date: 20240604
  Receipt Date: 20240604
  Transmission Date: 20240716
  Serious: Yes (Life-Threatening, Hospitalization)
  Sender: FDA-Public Use
  Company Number: None

PATIENT
  Age: 51 Year
  Sex: Male
  Weight: 64.5 kg

DRUGS (21)
  1. PEMETREXED [Suspect]
     Active Substance: PEMETREXED
     Indication: Lung adenocarcinoma
     Dates: start: 20240411, end: 20240411
  2. PEMBROLIZUMAB [Suspect]
     Active Substance: PEMBROLIZUMAB
     Indication: Lung adenocarcinoma
     Dates: start: 20240313, end: 20240313
  3. MORPHINE SULFATE [Concomitant]
     Active Substance: MORPHINE SULFATE
     Dosage: AS REQUIRED EVERY 4 HOURS
  4. PACLITAXEL [Concomitant]
     Active Substance: PACLITAXEL
     Indication: Lung adenocarcinoma
     Dates: start: 20240313, end: 20240313
  5. VERAPAMIL HYDROCHLORIDE [Concomitant]
     Active Substance: VERAPAMIL HYDROCHLORIDE
     Dosage: 120 MG IN THE MORNING
  6. NALOXEGOL [Concomitant]
     Active Substance: NALOXEGOL
     Dosage: 25 MG IN THE MORNING
  7. MOVICOL [Concomitant]
     Active Substance: POLYETHYLENE GLYCOL 3350\POTASSIUM CHLORIDE\SODIUM BICARBONATE\SODIUM CHLORIDE
     Dosage: 2 SACHETS IN THE MORNING
  8. VENLAFAXINE HYDROCHLORIDE [Concomitant]
     Active Substance: VENLAFAXINE HYDROCHLORIDE
     Dosage: 75 MG; 3 TABLETS IN THE MORNING
  9. KARDEGIC [Concomitant]
     Active Substance: ASPIRIN DL-LYSINE
  10. INDAPAMIDE\PERINDOPRIL [Concomitant]
     Active Substance: INDAPAMIDE\PERINDOPRIL
     Dosage: 75 MG; 3 TABLETS IN THE MORNING
  11. CARBOPLATIN [Concomitant]
     Active Substance: CARBOPLATIN
     Indication: Lung adenocarcinoma
     Dates: start: 20240313, end: 20240313
  12. VALPROATE SODIUM [Concomitant]
     Active Substance: VALPROATE SODIUM
     Dosage: 500 MG 2 TABLETS MORNING AND EVENING
  13. ALPRAZOLAM [Concomitant]
     Active Substance: ALPRAZOLAM
     Dosage: 0.5 MG MORNING AND EVENING
  14. ONDANSETRON [Concomitant]
     Active Substance: ONDANSETRON
     Dosage: 8 MG MORNING AND EVENING
  15. ATORVASTATIN [Concomitant]
     Active Substance: ATORVASTATIN
     Dosage: 40 MG 2 TABLETS IN THE EVENING
  16. SKENAN [Concomitant]
     Active Substance: MORPHINE SULFATE
     Dosage: 20 MG MORNING AND EVENING
  17. NICOPATCH [Concomitant]
     Active Substance: NICOTINE
     Dosage: 21MG/24H
  18. PACLITAXEL [Concomitant]
     Active Substance: PACLITAXEL
     Indication: Lung adenocarcinoma
     Dates: start: 20240222, end: 20240222
  19. CARBOPLATIN [Concomitant]
     Active Substance: CARBOPLATIN
     Indication: Lung adenocarcinoma
     Dates: start: 20240201, end: 20240201
  20. CARBOPLATIN [Concomitant]
     Active Substance: CARBOPLATIN
     Indication: Lung adenocarcinoma
     Dates: start: 20240222, end: 20240222
  21. PEMBROLIZUMAB [Suspect]
     Active Substance: PEMBROLIZUMAB
     Indication: Lung adenocarcinoma
     Dates: start: 20240222, end: 20240222

REACTIONS (2)
  - Rash [Recovering/Resolving]
  - Haemophagocytic lymphohistiocytosis [Recovering/Resolving]

NARRATIVE: CASE EVENT DATE: 20240423
